FAERS Safety Report 12337157 (Version 1)
Quarter: 2016Q2

REPORT INFORMATION
  Report Type: Spontaneous
  Country: US (occurrence: None)
  Receive Date: 20160504
  Receipt Date: 20160504
  Transmission Date: 20160815
  Serious: Yes (Other)
  Sender: FDA-Public Use
  Company Number: None

PATIENT
  Age: 81 Year
  Sex: Female

DRUGS (18)
  1. ASPIRIN DIPYRIDAM ER 25/200 MG SUBSTITUTE FOR AGGRENOX (?) [Suspect]
     Active Substance: ASPIRIN\DIPYRIDAMOLE
     Indication: CEREBROVASCULAR ACCIDENT PROPHYLAXIS
     Dosage: 1 PILL TWICE DAILY BY MOUTH
     Route: 048
     Dates: start: 20150820, end: 20150821
  2. BIOTIN [Concomitant]
     Active Substance: BIOTIN
  3. FISH OIL [Concomitant]
     Active Substance: FISH OIL
  4. NAMENDA XR [Concomitant]
     Active Substance: MEMANTINE HYDROCHLORIDE
  5. RALOXIFERE HCL [Concomitant]
  6. VITAMIN D2 [Concomitant]
     Active Substance: ERGOCALCIFEROL
  7. MELOXICAM. [Concomitant]
     Active Substance: MELOXICAM
  8. MELATONIN [Concomitant]
     Active Substance: MELATONIN
  9. OMEPRAZOLE DR [Concomitant]
     Active Substance: OMEPRAZOLE
  10. CLOPIDOGREL BISULFATE. [Concomitant]
     Active Substance: CLOPIDOGREL BISULFATE
  11. CALCIUM [Concomitant]
     Active Substance: CALCIUM
  12. DENEPEZIL HCL [Concomitant]
  13. METOPROLOL SUCC ER [Concomitant]
     Active Substance: METOPROLOL SUCCINATE
  14. OXYBUTYNIN CLER [Concomitant]
  15. LOW DOSE ASPIRIN [Concomitant]
     Active Substance: ASPIRIN
  16. VITAMIN B12 [Concomitant]
     Active Substance: CYANOCOBALAMIN
  17. PRESERVISION AREDS (2) [Concomitant]
  18. PRAVASTIAN SODIUM [Concomitant]

REACTIONS (3)
  - Headache [None]
  - Vision blurred [None]
  - Eye pain [None]

NARRATIVE: CASE EVENT DATE: 20150820
